FAERS Safety Report 8574868-1 (Version None)
Quarter: 2012Q3

REPORT INFORMATION
  Report Type: 
  Country: None (occurrence: None)
  Receive Date: 20120807
  Receipt Date: 20120725
  Transmission Date: 20120928
  Serious: Yes (Hospitalization)
  Sender: FDA-Public Use
  Company Number: RO-ELI_LILLY_AND_COMPANY-RO201207008758

PATIENT
  Sex: Male

DRUGS (1)
  1. PEMETREXED [Suspect]
     Indication: MESOTHELIOMA
     Dosage: UNK
     Dates: start: 20120201

REACTIONS (1)
  - CEREBROVASCULAR ACCIDENT [None]
